FAERS Safety Report 8876898 (Version 2)
Quarter: 2012Q4

REPORT INFORMATION
  Report Type: 
  Country: CA (occurrence: CA)
  Receive Date: 20121029
  Receipt Date: 20121219
  Transmission Date: 20130627
  Serious: Yes (Other)
  Sender: FDA-Public Use
  Company Number: CA-ELI_LILLY_AND_COMPANY-CA201210005913

PATIENT
  Sex: Female
  Weight: 55 kg

DRUGS (9)
  1. FORTEO [Suspect]
     Dosage: 20 ug, qd
     Route: 058
  2. NORVASC [Concomitant]
  3. ALTACE [Concomitant]
  4. CYMBALTA [Concomitant]
  5. REMERON [Concomitant]
  6. ELAVIL [Concomitant]
  7. OXYCODONE [Concomitant]
  8. FEROSOL [Concomitant]
  9. MULTIVITAMIN [Concomitant]

REACTIONS (2)
  - Hip arthroplasty [Recovered/Resolved]
  - Bone cyst [Recovered/Resolved]
